FAERS Safety Report 5483054-3 (Version None)
Quarter: 2007Q4

REPORT INFORMATION
  Report Type: 
  Country: None (occurrence: None)
  Receive Date: 20071011
  Receipt Date: 20071008
  Transmission Date: 20080405
  Serious: Yes (Other)
  Sender: FDA-Public Use
  Company Number: US-SHR-US-2006-018624

PATIENT
  Age: 58 Year
  Sex: Female
  Weight: 98.866 kg

DRUGS (8)
  1. BETASERON [Suspect]
     Indication: SECONDARY PROGRESSIVE MULTIPLE SCLEROSIS
     Dosage: 8 MIU, EVERY 2D
     Route: 058
     Dates: start: 20050614
  2. INDERAL LA [Concomitant]
     Dosage: 60 MG, UNK
  3. ZOCOR [Concomitant]
     Dosage: 80 MG, UNK
  4. ZOLOFT [Concomitant]
     Dosage: 100 MG, UNK
  5. LISINOPRIL [Concomitant]
     Dosage: 10 MG, UNK
  6. METFORMIN HCL [Concomitant]
     Dosage: 500 UNK, 2X/DAY
  7. MIACALCIN [Concomitant]
  8. PREVACID [Concomitant]
     Dosage: 40 MG, UNK

REACTIONS (7)
  - BLOOD TEST ABNORMAL [None]
  - HEPATOMEGALY [None]
  - INJECTION SITE ERYTHEMA [None]
  - INJECTION SITE PAIN [None]
  - LUNG NEOPLASM [None]
  - RENAL CYST [None]
  - SPLENOMEGALY [None]
